FAERS Safety Report 6637502 (Version 3)
Quarter: 2012Q4

REPORT INFORMATION
  Report Type: Report from Study
  Country: FR (occurrence: FR)
  Receive Date: 20080509
  Receipt Date: 20120903
  Transmission Date: 20130627
  Serious: Yes (Hospitalization, Other)
  Sender: FDA-Public Use
  Company Number: FR-PFIZER INC-2008039229

PATIENT
  Age: 13 Year
  Sex: Female

DRUGS (2)
  1. GENOTONORM [Suspect]
     Indication: GROWTH HORMONE DEFICIENCY
     Dosage: 2.6 mg, 1x/day
     Dates: start: 19980824
  2. LEVOTHYROX [Concomitant]
     Indication: HYPERTHYROIDISM
     Dosage: 35 drops daily
     Route: 048
     Dates: start: 20000216

REACTIONS (2)
  - Meningism [Recovered/Resolved]
  - Viral pharyngitis [Unknown]
